FAERS Safety Report 5822164-5 (Version None)
Quarter: 2008Q3

REPORT INFORMATION
  Report Type: 
  Country: None (occurrence: None)
  Receive Date: 20080725
  Receipt Date: 20080722
  Transmission Date: 20090109
  Serious: Yes (Death)
  Sender: FDA-Public Use
  Company Number: PHHY2008VE14890

PATIENT
  Sex: Female

DRUGS (1)
  1. DIOVAN AMLIBON [Suspect]
     Dosage: 160/5 MG DAILY
     Route: 048
     Dates: start: 20060701

REACTIONS (1)
  - DEATH [None]
